FAERS Safety Report 4370772-3 (Version None)
Quarter: 2004Q2

REPORT INFORMATION
  Report Type: 
  Country: None (occurrence: None)
  Receive Date: 20040603
  Receipt Date: 20040603
  Transmission Date: 20050107
  Serious: No
  Sender: FDA-Public Use
  Company Number: None

PATIENT
  Age: 51 Year
  Sex: Male
  Weight: 69.4003 kg

DRUGS (2)
  1. FOSAMAX [Suspect]
     Dosage: 70 MG PO Q WEEK
     Route: 048
     Dates: start: 20040120
  2. FOSAMAX [Suspect]
     Dosage: 70 MG PO Q WEEK
     Route: 048
     Dates: start: 20040420

REACTIONS (1)
  - SCLERITIS [None]
